FAERS Safety Report 23679082 (Version 1)
Quarter: 2024Q1

REPORT INFORMATION
  Report Type: Spontaneous
  Country: US (occurrence: None)
  Receive Date: 20240326
  Receipt Date: 20240326
  Transmission Date: 20240409
  Serious: Yes (Other)
  Sender: FDA-Public Use
  Company Number: None

PATIENT
  Age: 60 Year
  Sex: Female
  Weight: 62.1 kg

DRUGS (5)
  1. XYZAL [Suspect]
     Active Substance: LEVOCETIRIZINE DIHYDROCHLORIDE
     Indication: Multiple allergies
     Dosage: FREQUENCY : DAILY;?
     Route: 048
     Dates: start: 20180101, end: 20240201
  2. ZYRTEC [Suspect]
     Active Substance: CETIRIZINE HYDROCHLORIDE
  3. PREMPRO [Concomitant]
     Active Substance: ESTROGENS, CONJUGATED\MEDROXYPROGESTERONE ACETATE
  4. VANADIUM [Concomitant]
     Active Substance: VANADIUM
  5. COLLAGEN [Concomitant]
     Active Substance: COLLAGEN

REACTIONS (3)
  - Pruritus [None]
  - Drug withdrawal syndrome [None]
  - Anxiety [None]

NARRATIVE: CASE EVENT DATE: 20240201
